FAERS Safety Report 8354148-X (Version None)
Quarter: 2012Q2

REPORT INFORMATION
  Report Type: 
  Country: None (occurrence: None)
  Receive Date: 20120511
  Receipt Date: 20120510
  Transmission Date: 20120825
  Serious: No
  Sender: FDA-Public Use
  Company Number: US-PFIZER INC-2012111044

PATIENT
  Age: 74 Year
  Sex: Male

DRUGS (2)
  1. ATORVASTATIN CALCIUM [Suspect]
     Dosage: 20 MG, UNK
  2. ATORVASTATIN CALCIUM [Suspect]
     Dosage: HALF OF 80 MG TABLET, UNK

REACTIONS (2)
  - BLOOD CALCIUM INCREASED [None]
  - BLOOD TEST ABNORMAL [None]
